FAERS Safety Report 9101653 (Version 1)
Quarter: 2013Q1

REPORT INFORMATION
  Report Type: Spontaneous
  Country: BR (occurrence: BR)
  Receive Date: 20130218
  Receipt Date: 20130218
  Transmission Date: 20140127
  Serious: Yes (Other)
  Sender: FDA-Public Use
  Company Number: BR-JNJFOC-20130206748

PATIENT
  Age: 37 Year
  Sex: Female
  Weight: 60 kg

DRUGS (4)
  1. REMICADE [Suspect]
     Indication: RHEUMATOID ARTHRITIS
     Route: 042
     Dates: start: 20130118
  2. DEFLAZACORT [Concomitant]
     Indication: RHEUMATOID ARTHRITIS
     Route: 065
     Dates: start: 2011
  3. HYDROXYCHLOROQUINE SULFATE [Concomitant]
     Route: 065
     Dates: start: 2011
  4. METHOTREXATE [Concomitant]
     Route: 065
     Dates: start: 2011

REACTIONS (2)
  - Migraine [Unknown]
  - Muscular weakness [Recovered/Resolved]
